FAERS Safety Report 15545060 (Version 1)
Quarter: 2018Q4

REPORT INFORMATION
  Report Type: Spontaneous
  Country: US (occurrence: US)
  Receive Date: 20181024
  Receipt Date: 20181024
  Transmission Date: 20190205
  Serious: No
  Sender: FDA-Public Use
  Company Number: US-TEVA-2018-US-965741

PATIENT
  Sex: Male

DRUGS (1)
  1. TADALTAB [Suspect]
     Active Substance: TADALAFIL
     Indication: HYPERTENSION
     Route: 065
     Dates: start: 20181012

REACTIONS (3)
  - Arthritis [Recovering/Resolving]
  - Arthralgia [Recovering/Resolving]
  - Pain in extremity [Recovering/Resolving]

NARRATIVE: CASE EVENT DATE: 20181012
